FAERS Safety Report 10265653 (Version 1)
Quarter: 2014Q2

REPORT INFORMATION
  Report Type: Spontaneous
  Country: JP (occurrence: JP)
  Receive Date: 20140627
  Receipt Date: 20140627
  Transmission Date: 20141212
  Serious: Yes (Other)
  Sender: FDA-Public Use
  Company Number: JP-B.I. PHARMACEUTICALS,INC./RIDGEFIELD-2014-BI-29238GD

PATIENT
  Age: 65 Year
  Sex: Female

DRUGS (6)
  1. TELMISARTAN [Suspect]
     Indication: RENAL FAILURE CHRONIC
     Route: 065
  2. TELMISARTAN [Suspect]
     Indication: HYPERTENSION
  3. FUROSEMIDE [Suspect]
     Indication: RENAL FAILURE CHRONIC
     Route: 065
  4. FUROSEMIDE [Suspect]
     Indication: HYPERTENSION
  5. TRICHLORMETHIAZIDE [Suspect]
     Indication: RENAL FAILURE CHRONIC
     Route: 065
  6. TRICHLORMETHIAZIDE [Suspect]
     Indication: HYPERTENSION

REACTIONS (1)
  - Pemphigoid [Recovered/Resolved]
